FAERS Safety Report 7373234-4 (Version None)
Quarter: 2011Q1

REPORT INFORMATION
  Report Type: 
  Country: None (occurrence: None)
  Receive Date: 20110324
  Receipt Date: 20110316
  Transmission Date: 20110831
  Serious: Yes (Congenital Anomaly)
  Sender: FDA-Public Use
  Company Number: DK-ABBOTT-11P-044-0709097-00

PATIENT

DRUGS (1)
  1. HUMIRA [Suspect]
     Indication: DRUG EXPOSURE DURING PREGNANCY
     Route: 064

REACTIONS (3)
  - MATERNAL DRUGS AFFECTING FOETUS [None]
  - DRUG EXPOSURE DURING PREGNANCY [None]
  - CHROMOSOMAL MUTATION [None]
